FAERS Safety Report 7157817-2 (Version None)
Quarter: 2010Q4

REPORT INFORMATION
  Report Type: 
  Country: None (occurrence: None)
  Receive Date: 20101130
  Receipt Date: 20101115
  Transmission Date: 20110411
  Serious: Yes (Hospitalization)
  Sender: FDA-Public Use
  Company Number: DSJ-2010-20547

PATIENT
  Age: 73 Year
  Sex: Male

DRUGS (11)
  1. OLMESARTAN MEDOXOMIL [Suspect]
     Indication: PRODUCT USED FOR UNKNOWN INDICATION
     Dosage: 20 MG (20 MG, 1 IN 1 D), PER ORAL
     Route: 048
     Dates: start: 20100115, end: 20100317
  2. PIRESPA (PIRFENIDONE) (TABLET) (PIRFENIDONE) [Suspect]
     Indication: IDIOPATHIC PULMONARY FIBROSIS
     Dosage: SEE IMAGE
     Route: 048
     Dates: start: 20090501, end: 20090510
  3. PIRESPA (PIRFENIDONE) (TABLET) (PIRFENIDONE) [Suspect]
     Indication: IDIOPATHIC PULMONARY FIBROSIS
     Dosage: SEE IMAGE
     Route: 048
     Dates: start: 20090511, end: 20091203
  4. PIRESPA (PIRFENIDONE) (TABLET) (PIRFENIDONE) [Suspect]
     Indication: IDIOPATHIC PULMONARY FIBROSIS
     Dosage: SEE IMAGE
     Route: 048
     Dates: start: 20091204
  5. FLUITRAN (TRICHLORMETHIAZIDE) (TABLET) (TRICHLORMETHIAZIDE) [Suspect]
     Indication: PRODUCT USED FOR UNKNOWN INDICATION
     Dosage: 2 MG (2 MG, 1 IN 1 D), PER ORAL
     Route: 048
     Dates: start: 20100115, end: 20100317
  6. AMLODIN OD (AMLODIPINE BESILATE) (AMLODIPINE BESILATE) [Concomitant]
  7. ACTOS (PIOGLITAZONE) (PIOGLITAZONE) [Concomitant]
  8. GLIMICRON (GLICLAZIDE) (GLICLAZIDE) [Concomitant]
  9. BASEN OD (VOGLIBOSE) (VOGLIBOSE) [Concomitant]
  10. HARNAL D (TAMSULOSIN HYDROCHLORIDE) (TAMSULOSIN HYDROCHLORIDE) [Concomitant]
  11. EVIPROSTAT (SERENOA REPENS) (SERENOA REPENS) [Concomitant]

REACTIONS (6)
  - BENIGN PROSTATIC HYPERPLASIA [None]
  - BLOOD LACTATE DEHYDROGENASE INCREASED [None]
  - CONDITION AGGRAVATED [None]
  - GAMMA-GLUTAMYLTRANSFERASE INCREASED [None]
  - HYPERTENSION [None]
  - INTERSTITIAL LUNG DISEASE [None]
